FAERS Safety Report 7726326-1 (Version None)
Quarter: 2011Q3

REPORT INFORMATION
  Report Type: 
  Country: None (occurrence: None)
  Receive Date: 20110902
  Receipt Date: 20110831
  Transmission Date: 20111222
  Serious: Yes (Other)
  Sender: FDA-Public Use
  Company Number: NL-PFIZER INC-2011204028

PATIENT
  Age: 32 Year
  Sex: Male

DRUGS (2)
  1. VARENICLINE TARTRATE [Suspect]
     Indication: SMOKING CESSATION THERAPY
     Dosage: UNK
     Dates: start: 20110701, end: 20110801
  2. SEROQUEL [Concomitant]
     Dosage: 25 MG, UNK

REACTIONS (3)
  - ABNORMAL DREAMS [None]
  - HEADACHE [None]
  - HYPERTENSION [None]
